FAERS Safety Report 23698348 (Version 1)
Quarter: 2024Q2

REPORT INFORMATION
  Report Type: Spontaneous
  Country: FR (occurrence: FR)
  Receive Date: 20240402
  Receipt Date: 20240402
  Transmission Date: 20240716
  Serious: Yes (Hospitalization, Other)
  Sender: FDA-Public Use
  Company Number: FR-BIOCRYST PHARMACEUTICALS, INC.-2024BCR00338

PATIENT

DRUGS (1)
  1. RAPIVAB [Suspect]
     Active Substance: PERAMIVIR
     Route: 042

REACTIONS (1)
  - Blindness unilateral [Unknown]
